FAERS Safety Report 21123261 (Version 1)
Quarter: 2022Q3

REPORT INFORMATION
  Report Type: Spontaneous
  Country: US (occurrence: US)
  Receive Date: 20220724
  Receipt Date: 20220724
  Transmission Date: 20221026
  Serious: No
  Sender: FDA-Public Use
  Company Number: US-SA-SAC20220721000674

PATIENT
  Age: 45 Year
  Sex: Female

DRUGS (1)
  1. DUPIXENT [Suspect]
     Active Substance: DUPILUMAB
     Indication: Dermatitis allergic
     Dosage: 300 MG
     Route: 058
     Dates: start: 202108

REACTIONS (2)
  - Product dose omission issue [Unknown]
  - Product use in unapproved indication [Unknown]

NARRATIVE: CASE EVENT DATE: 20210801
